FAERS Safety Report 9242015 (Version 1)
Quarter: 2013Q2

REPORT INFORMATION
  Report Type: Spontaneous
  Country: US (occurrence: US)
  Receive Date: 20130419
  Receipt Date: 20130419
  Transmission Date: 20140414
  Serious: No
  Sender: FDA-Public Use
  Company Number: US-PFIZER INC-2013124161

PATIENT
  Sex: 0

DRUGS (2)
  1. LYRICA [Suspect]
     Indication: NEUROPATHY PERIPHERAL
     Dosage: UNK
  2. LYRICA [Suspect]
     Indication: PAIN

REACTIONS (3)
  - Hypovitaminosis [Unknown]
  - Hypoaesthesia [Unknown]
  - Drug ineffective [Unknown]
